FAERS Safety Report 7201736-X (Version None)
Quarter: 2010Q4

REPORT INFORMATION
  Report Type: 
  Country: None (occurrence: None)
  Receive Date: 20101229
  Receipt Date: 20101217
  Transmission Date: 20110411
  Serious: Yes (Other)
  Sender: FDA-Public Use
  Company Number: SE-SANOFI-AVENTIS-2010SA055302

PATIENT
  Age: 60 Year
  Sex: Female

DRUGS (7)
  1. MULTAQ [Suspect]
     Indication: ATRIAL FIBRILLATION
     Route: 048
     Dates: start: 20100908
  2. FELODIPINE [Concomitant]
  3. AMILORIDE HCL AND HYDROCHLOROTHIAZIDE [Concomitant]
  4. SIMVASTATIN [Concomitant]
  5. WARAN [Concomitant]
  6. ATACAND [Concomitant]
  7. METOPROLOL TARTRATE [Concomitant]

REACTIONS (1)
  - ATRIAL FIBRILLATION [None]
